FAERS Safety Report 19788766 (Version 2)
Quarter: 2021Q4

REPORT INFORMATION
  Report Type: Spontaneous
  Country: US (occurrence: US)
  Receive Date: 20210904
  Receipt Date: 20211001
  Transmission Date: 20220303
  Serious: No
  Sender: FDA-Public Use
  Company Number: 2021A683777

PATIENT
  Sex: Male

DRUGS (5)
  1. BYDUREON BCISE [Suspect]
     Active Substance: EXENATIDE
     Indication: Type 2 diabetes mellitus
     Route: 058
     Dates: start: 202102
  2. BYDUREON [Concomitant]
     Active Substance: EXENATIDE
     Indication: Type 2 diabetes mellitus
     Route: 058
  3. VITAMIN A [Concomitant]
     Active Substance: VITAMIN A
  4. LEUCINE/VITAMIN B12 NOS/NICOTINAMIDE/CALCIUM PANTOTHENATE/VITAMIN E NO [Concomitant]
  5. VITAMIN C [Concomitant]
     Active Substance: ASCORBIC ACID

REACTIONS (3)
  - Weight fluctuation [Not Recovered/Not Resolved]
  - Device malfunction [Not Recovered/Not Resolved]
  - Device leakage [Not Recovered/Not Resolved]
